FAERS Safety Report 25182724 (Version 1)
Quarter: 2025Q2

REPORT INFORMATION
  Report Type: Report from Study
  Country: TW (occurrence: None)
  Receive Date: 20250410
  Receipt Date: 20250410
  Transmission Date: 20250717
  Serious: Yes (Death, Other)
  Sender: ADIENNE PHARMA & BIOTECH
  Company Number: TW-ADIENNEP-2025AD000212

PATIENT
  Age: 60 Year
  Sex: Male

DRUGS (2)
  1. THIOTEPA [Suspect]
     Active Substance: THIOTEPA
     Indication: Autologous haematopoietic stem cell transplant
     Dosage: 5 MG/KG/Q12H ON DAY 2 AND DAY 3
     Dates: start: 20170916, end: 20170917
  2. CARMUSTINE [Suspect]
     Active Substance: CARMUSTINE
     Indication: Autologous haematopoietic stem cell transplant
     Dates: start: 20170915, end: 20170915

REACTIONS (1)
  - Pneumonia cytomegaloviral [Fatal]

NARRATIVE: CASE EVENT DATE: 20171005
